FAERS Safety Report 9316646 (Version 2)
Quarter: 2013Q3

REPORT INFORMATION
  Report Type: Report from Study
  Country: CA (occurrence: CA)
  Receive Date: 20130530
  Receipt Date: 20130702
  Transmission Date: 20140515
  Serious: Yes (Other)
  Sender: FDA-Public Use
  Company Number: PHHY2013CA054394

PATIENT
  Age: 36 Year
  Sex: Male

DRUGS (4)
  1. CLOZARIL [Suspect]
     Indication: PSYCHOTIC DISORDER
     Dosage: 100 MG, UNK
     Route: 048
     Dates: start: 20130326, end: 20130509
  2. PAXIL [Concomitant]
     Dosage: UNK
  3. EPIVAL [Concomitant]
     Dosage: UNK
  4. LITHIUM [Concomitant]
     Dosage: UNK

REACTIONS (3)
  - Hypotonia [Recovered/Resolved]
  - Hyperthermia [Recovered/Resolved]
  - Drug ineffective [Recovered/Resolved]
